FAERS Safety Report 13602487 (Version 1)
Quarter: 2017Q2

REPORT INFORMATION
  Report Type: Spontaneous
  Country: JP (occurrence: JP)
  Receive Date: 20170601
  Receipt Date: 20170601
  Transmission Date: 20170830
  Serious: Yes (Other)
  Sender: FDA-Public Use
  Company Number: JP-ASTELLAS-2017US020948

PATIENT
  Age: 6 Decade
  Sex: Male

DRUGS (2)
  1. TARCEVA [Suspect]
     Active Substance: ERLOTINIB HYDROCHLORIDE
     Indication: NON-SMALL CELL LUNG CANCER
     Dosage: 75 MG, THE FRACTIONATION DOSE FREQUENCY UNCERTAINTY
     Route: 048
     Dates: start: 2016
  2. AVASTIN                            /00848101/ [Suspect]
     Active Substance: SIMVASTATIN
     Indication: NON-SMALL CELL LUNG CANCER
     Route: 041
     Dates: start: 2016

REACTIONS (1)
  - Nasal septum perforation [Not Recovered/Not Resolved]
